FAERS Safety Report 20606480 (Version 1)
Quarter: 2022Q1

REPORT INFORMATION
  Report Type: Spontaneous
  Country: US (occurrence: None)
  Receive Date: 20220316
  Receipt Date: 20220316
  Transmission Date: 20220423
  Serious: No
  Sender: FDA-Public Use
  Company Number: None

PATIENT
  Age: 28 Year
  Sex: Female
  Weight: 98.1 kg

DRUGS (10)
  1. PAXLOVID [Suspect]
     Active Substance: NIRMATRELVIR\RITONAVIR
     Indication: COVID-19
     Dosage: EVERY 12 HOURS  3 TABLETS?
     Route: 048
  2. LEVOTHYROXINE [Concomitant]
     Active Substance: LEVOTHYROXINE
  3. PROZAC [Concomitant]
     Active Substance: FLUOXETINE HYDROCHLORIDE
  4. WELLBUTRIN [Concomitant]
     Active Substance: BUPROPION HYDROCHLORIDE
  5. TOPIRAMATE [Concomitant]
     Active Substance: TOPIRAMATE
  6. WEGOVY [Concomitant]
     Active Substance: SEMAGLUTIDE
  7. VITAMIN D [Concomitant]
     Active Substance: VITAMIN D NOS
  8. AMBIEN [Concomitant]
     Active Substance: ZOLPIDEM TARTRATE
  9. claritin [Concomitant]
  10. FLONASE [Concomitant]
     Active Substance: FLUTICASONE PROPIONATE

REACTIONS (2)
  - Dysgeusia [None]
  - Vomiting [None]

NARRATIVE: CASE EVENT DATE: 20220316
